FAERS Safety Report 12292123 (Version 1)
Quarter: 2016Q2

REPORT INFORMATION
  Report Type: Report from Study
  Country: US (occurrence: US)
  Receive Date: 20160421
  Receipt Date: 20160421
  Transmission Date: 20160815
  Serious: No
  Sender: FDA-Public Use
  Company Number: US-AMGEN-USASL2016032805

PATIENT
  Age: 73 Year
  Sex: Female

DRUGS (1)
  1. REPATHA [Suspect]
     Active Substance: EVOLOCUMAB
     Indication: HYPERCHOLESTEROLAEMIA
     Dosage: 140 MG, Q2WK
     Route: 065
     Dates: start: 20160311

REACTIONS (18)
  - Respiratory tract congestion [Not Recovered/Not Resolved]
  - Injection site scab [Unknown]
  - Productive cough [Unknown]
  - Sputum discoloured [Unknown]
  - Underdose [Unknown]
  - Rhinorrhoea [Not Recovered/Not Resolved]
  - Injury associated with device [Unknown]
  - Injection site haemorrhage [Unknown]
  - Injection site swelling [Unknown]
  - Device leakage [Unknown]
  - Injection site extravasation [Unknown]
  - Influenza like illness [Unknown]
  - Cough [Unknown]
  - Head discomfort [Not Recovered/Not Resolved]
  - Malaise [Unknown]
  - Injection site erythema [Unknown]
  - Injection site injury [Unknown]
  - Sinus disorder [Unknown]

NARRATIVE: CASE EVENT DATE: 201603
